FAERS Safety Report 8070051-7 (Version None)
Quarter: 2012Q1

REPORT INFORMATION
  Report Type: 
  Country: None (occurrence: None)
  Receive Date: 20120125
  Receipt Date: 20120118
  Transmission Date: 20120608
  Serious: Yes (Other)
  Sender: FDA-Public Use
  Company Number: CA-US-EMD SERONO, INC.-7040290

PATIENT
  Sex: Female
  Weight: 81 kg

DRUGS (3)
  1. CELEXA [Concomitant]
     Indication: DEPRESSION
     Route: 048
     Dates: start: 20041210
  2. BLINDED STUDY MEDICATION [Suspect]
     Indication: MULTIPLE SCLEROSIS
     Route: 048
     Dates: start: 20060706, end: 20061006
  3. REBIF [Suspect]
     Indication: MULTIPLE SCLEROSIS
     Dates: start: 20060814

REACTIONS (1)
  - BASAL CELL CARCINOMA [None]
